FAERS Safety Report 6871059-7 (Version None)
Quarter: 2010Q3

REPORT INFORMATION
  Report Type: 
  Country: None (occurrence: None)
  Receive Date: 20100723
  Receipt Date: 20100712
  Transmission Date: 20110219
  Serious: Yes (Other)
  Sender: FDA-Public Use
  Company Number: CA-JNJFOC-20100704387

PATIENT
  Age: 40 Year

DRUGS (1)
  1. REMICADE [Suspect]
     Indication: ANKYLOSING SPONDYLITIS
     Route: 042

REACTIONS (5)
  - ANKYLOSING SPONDYLITIS [None]
  - FATIGUE [None]
  - HEPATIC STEATOSIS [None]
  - NASAL SEPTUM DEVIATION [None]
  - PANCREAS LIPOMATOSIS [None]
